FAERS Safety Report 10706940 (Version 2)
Quarter: 2015Q1

REPORT INFORMATION
  Report Type: Spontaneous
  Country: JP (occurrence: JP)
  Receive Date: 20150113
  Receipt Date: 20150213
  Transmission Date: 20150721
  Serious: Yes (Hospitalization, Other)
  Sender: FDA-Public Use
  Company Number: JP-PFIZER INC-2015007709

PATIENT
  Age: 79 Year
  Sex: Female

DRUGS (1)
  1. AROMASIN [Suspect]
     Active Substance: EXEMESTANE
     Indication: BREAST CANCER
     Dosage: UNK
     Route: 048
     Dates: start: 2010, end: 201411

REACTIONS (4)
  - Cartilage hypertrophy [Not Recovered/Not Resolved]
  - Blood calcium abnormal [Unknown]
  - Dyspnoea [Unknown]
  - Laryngeal stenosis [Not Recovered/Not Resolved]
